FAERS Safety Report 14933097 (Version 2)
Quarter: 2018Q2

REPORT INFORMATION
  Report Type: Spontaneous
  Country: US (occurrence: US)
  Receive Date: 20180524
  Receipt Date: 20180615
  Transmission Date: 20180711
  Serious: No
  Sender: FDA-Public Use
  Company Number: US-PFIZER INC-2018196700

PATIENT
  Age: 71 Year
  Sex: Female
  Weight: 62.13 kg

DRUGS (2)
  1. IBRANCE [Suspect]
     Active Substance: PALBOCICLIB
     Indication: BREAST CANCER METASTATIC
     Dosage: 125 MG, CYCLIC (DAYS 1-21 Q28 DAYS)
     Route: 048
     Dates: start: 20180503
  2. IBRANCE [Suspect]
     Active Substance: PALBOCICLIB
     Dosage: 125 MG, CYCLIC (DAYS 1-21 Q28 DAYS)
     Route: 048
     Dates: start: 2018

REACTIONS (6)
  - White blood cell count decreased [Unknown]
  - Neck pain [Unknown]
  - Fatigue [Recovering/Resolving]
  - Somnolence [Unknown]
  - Arthralgia [Unknown]
  - Accidental overdose [Unknown]

NARRATIVE: CASE EVENT DATE: 2018
